FAERS Safety Report 5305714-7 (Version None)
Quarter: 2007Q2

REPORT INFORMATION
  Report Type: 
  Country: None (occurrence: None)
  Receive Date: 20070416
  Receipt Date: 20070330
  Transmission Date: 20071010
  Serious: No
  Sender: FDA-Public Use
  Company Number: 02100-EUR-07-0026

PATIENT
  Age: 90 Year
  Sex: Male

DRUGS (7)
  1. CILOSTAZOL [Suspect]
     Indication: PERIPHERAL ARTERIAL OCCLUSIVE DISEASE
     Dosage: 200 MG ORAL
     Route: 048
     Dates: start: 20070219, end: 20070220
  2. BISOPROLOL FUMARATE [Concomitant]
  3. IRBESARTAN AND HYDROCHLOROTHIAZIDE [Concomitant]
  4. FUROSEMIDE [Concomitant]
  5. ISOSORBIDE DINITRATE [Concomitant]
  6. ALLOPURINOL [Concomitant]
  7. PIRACETAM [Concomitant]

REACTIONS (2)
  - FALL [None]
  - SHOCK [None]
